FAERS Safety Report 11044331 (Version 2)
Quarter: 2015Q2

REPORT INFORMATION
  Report Type: Spontaneous
  Country: IT (occurrence: IT)
  Receive Date: 20150417
  Receipt Date: 20150526
  Transmission Date: 20150821
  Serious: Yes (Death, Hospitalization)
  Sender: FDA-Public Use
  Company Number: IT-PFIZER INC-2015127324

PATIENT
  Age: 40 Year
  Sex: Male

DRUGS (4)
  1. AVASTIN [Suspect]
     Active Substance: BEVACIZUMAB
     Indication: LUNG ADENOCARCINOMA METASTATIC
     Dosage: 1230 MG, CYCLIC
     Route: 042
     Dates: start: 20140606, end: 20140718
  2. PACLITAXEL TEVA [Concomitant]
     Active Substance: PACLITAXEL
     Indication: LUNG ADENOCARCINOMA METASTATIC
     Dosage: 395 MG, UNK
     Route: 042
     Dates: start: 20140606, end: 20140718
  3. CRIZOTINIB [Suspect]
     Active Substance: CRIZOTINIB
     Indication: LUNG ADENOCARCINOMA METASTATIC
     Dosage: 400 MG, DAILY
     Route: 048
     Dates: start: 20140902, end: 20140930
  4. CARBOPLATIN HOSPIRA [Concomitant]
     Active Substance: CARBOPLATIN
     Indication: LUNG ADENOCARCINOMA METASTATIC
     Dosage: 694 MG, UNK
     Route: 042
     Dates: start: 20140606, end: 20140718

REACTIONS (3)
  - Intestinal infarction [Fatal]
  - Peritonitis [Fatal]
  - Intestinal perforation [Fatal]

NARRATIVE: CASE EVENT DATE: 20140930
